FAERS Safety Report 6632344-7 (Version None)
Quarter: 2010Q1

REPORT INFORMATION
  Report Type: 
  Country: None (occurrence: None)
  Receive Date: 20100312
  Receipt Date: 20100308
  Transmission Date: 20100710
  Serious: Yes (Death, Life-Threatening, Hospitalization)
  Sender: FDA-Public Use
  Company Number: D0066744A

PATIENT
  Sex: Female

DRUGS (11)
  1. FORTUM [Suspect]
     Indication: INFECTION
     Route: 042
     Dates: start: 20081220
  2. DOXYCYCLINE [Suspect]
     Indication: INFECTION
     Dosage: 200MG PER DAY
     Route: 042
     Dates: start: 20081230, end: 20090119
  3. NOVALGIN [Suspect]
     Indication: PAIN
     Route: 065
     Dates: start: 20090114, end: 20090121
  4. NORAVID [Suspect]
     Indication: THROMBOSIS PROPHYLAXIS
     Dosage: 400MG THREE TIMES PER DAY
     Route: 048
     Dates: start: 20081210, end: 20090113
  5. KONAKION [Suspect]
     Indication: FLUID REPLACEMENT
     Route: 042
     Dates: start: 20081227, end: 20081227
  6. AMBISOME [Suspect]
     Indication: FUNGAL INFECTION
     Route: 042
     Dates: start: 20081227, end: 20090123
  7. RAPAMUNE [Suspect]
     Dosage: 2MG PER DAY
     Route: 048
     Dates: start: 20081218
  8. DILAUDID [Suspect]
     Indication: PAIN
     Route: 042
     Dates: start: 20081230, end: 20090119
  9. MULTIPLE MEDICATION [Suspect]
     Route: 065
  10. ULTIVA [Concomitant]
     Route: 042
     Dates: start: 20090102, end: 20090102
  11. MULTIPLE MEDICATION [Concomitant]
     Route: 065

REACTIONS (17)
  - BLISTER [None]
  - CENTRAL VENOUS CATHETERISATION [None]
  - CONSTIPATION [None]
  - EPSTEIN-BARR VIRUS INFECTION [None]
  - FUNGAL INFECTION [None]
  - HERPES VIRUS INFECTION [None]
  - MUCOSAL INFLAMMATION [None]
  - NAUSEA [None]
  - ORAL MUCOSA EROSION [None]
  - PAIN [None]
  - PAIN OF SKIN [None]
  - PYREXIA [None]
  - RASH [None]
  - RASH MACULAR [None]
  - SLEEP DISORDER [None]
  - TOXIC EPIDERMAL NECROLYSIS [None]
  - VIRAL INFECTION [None]
